FAERS Safety Report 8598498-0 (Version None)
Quarter: 2012Q3

REPORT INFORMATION
  Report Type: 
  Country: None (occurrence: None)
  Receive Date: 20120816
  Receipt Date: 20120809
  Transmission Date: 20120928
  Serious: Yes (Other)
  Sender: FDA-Public Use
  Company Number: CA-ROCHE-1091873

PATIENT
  Sex: Male
  Weight: 60.836 kg

DRUGS (3)
  1. AVASTIN [Suspect]
     Indication: GLIOBLASTOMA
     Route: 042
     Dates: start: 20120712
  2. DEXAMETHASONE [Concomitant]
  3. DILANTIN [Concomitant]

REACTIONS (4)
  - DIARRHOEA [None]
  - AMNESIA [None]
  - HYPERSOMNIA [None]
  - RECTAL HAEMORRHAGE [None]
